FAERS Safety Report 8312595-6 (Version None)
Quarter: 2012Q2

REPORT INFORMATION
  Report Type: 
  Country: None (occurrence: None)
  Receive Date: 20120424
  Receipt Date: 20120420
  Transmission Date: 20120825
  Serious: Yes (Other)
  Sender: FDA-Public Use
  Company Number: ADR-2012-00584

PATIENT
  Sex: Female

DRUGS (2)
  1. LIORESAL [Suspect]
     Indication: MUSCLE SPASTICITY
  2. LIORESAL [Suspect]
     Indication: CEREBRAL PALSY

REACTIONS (5)
  - LUNG DISORDER [None]
  - GENERAL PHYSICAL HEALTH DETERIORATION [None]
  - DEVICE MALFUNCTION [None]
  - MUSCLE CONTRACTURE [None]
  - TREATMENT NONCOMPLIANCE [None]
